FAERS Safety Report 8892475 (Version 1)
Quarter: 2012Q4

REPORT INFORMATION
  Report Type: Spontaneous
  Country: US (occurrence: None)
  Receive Date: 20121031
  Receipt Date: 20121031
  Transmission Date: 20130627
  Serious: Yes (Death, Hospitalization)
  Sender: FDA-Public Use
  Company Number: FK201203169

PATIENT
  Age: 53 Year
  Sex: Male
  Weight: 70 kg

DRUGS (3)
  1. CARBOPLATIN [Suspect]
     Indication: LUNG ADENOCARCINOMA
     Dosage: 1 in 3 weeks
     Dates: start: 20120425, end: 20120516
  2. MORAB-003 [Suspect]
     Dates: start: 20120425, end: 20120516
  3. PACLITAXEL (PACLITAXEL) [Suspect]
     Indication: LUNG ADENOCARCINOMA
     Dosage: 1 in 3 weeks (not otherwise specified)
     Route: 042
     Dates: start: 20120425, end: 20120516

REACTIONS (6)
  - Haemoglobin decreased [None]
  - Platelet count decreased [None]
  - Blood sodium decreased [None]
  - Nausea [None]
  - General physical health deterioration [None]
  - Metastases to meninges [None]
